FAERS Safety Report 5575026-5 (Version None)
Quarter: 2007Q4

REPORT INFORMATION
  Report Type: 
  Country: None (occurrence: None)
  Receive Date: 20071130
  Receipt Date: 20070727
  Transmission Date: 20080405
  Serious: No
  Sender: FDA-Public Use
  Company Number: US200707006987

PATIENT
  Age: 56 Year
  Sex: Male
  Weight: 147.8 kg

DRUGS (7)
  1. BYETTA [Suspect]
     Indication: TYPE 2 DIABETES MELLITUS
     Dosage: 5 UG, 2/D, SUBCUTANEOUS ; 10 UG, 2/D, SUBCUTANEOUS
     Route: 058
     Dates: start: 20070401, end: 20070704
  2. BYETTA [Suspect]
     Indication: TYPE 2 DIABETES MELLITUS
     Dosage: 5 UG, 2/D, SUBCUTANEOUS ; 10 UG, 2/D, SUBCUTANEOUS
     Route: 058
     Dates: start: 20070701
  3. LOVASTATIN [Concomitant]
  4. LISINOPRIL [Concomitant]
  5. MELOXICAM [Concomitant]
  6. GLIMEPIRIDE [Concomitant]
  7. AMARYL [Concomitant]

REACTIONS (6)
  - ARTHRITIS [None]
  - BLOOD CHOLESTEROL DECREASED [None]
  - BURNING SENSATION [None]
  - DYSPEPSIA [None]
  - NAUSEA [None]
  - WEIGHT DECREASED [None]
